FAERS Safety Report 7814471-1 (Version None)
Quarter: 2011Q4

REPORT INFORMATION
  Report Type: 
  Country: None (occurrence: None)
  Receive Date: 20111014
  Receipt Date: 20111010
  Transmission Date: 20120403
  Serious: Yes (Death)
  Sender: FDA-Public Use
  Company Number: PHEH2011US02592

PATIENT
  Sex: Female

DRUGS (15)
  1. PROMETHAZINE [Suspect]
  2. NEXIUM [Suspect]
  3. BENICAR [Suspect]
  4. ZOFRAN [Suspect]
  5. LOPRESSOR [Suspect]
  6. CLONAZEPAM [Suspect]
  7. OXYCODONE HCL [Suspect]
  8. FEMARA [Suspect]
  9. SENOKOT [Suspect]
  10. ZOMETA [Suspect]
  11. VITAMIN B-12 [Suspect]
  12. ABILIFY [Suspect]
  13. NEURONTIN [Suspect]
  14. ATIVAN [Suspect]
  15. POTASSIUM CHLORIDE [Suspect]

REACTIONS (1)
  - BREAST CANCER METASTATIC [None]
